FAERS Safety Report 22006357 (Version 1)
Quarter: 2023Q1

REPORT INFORMATION
  Report Type: Report from Study
  Country: IT (occurrence: IT)
  Receive Date: 20230217
  Receipt Date: 20230217
  Transmission Date: 20230417
  Serious: Yes (Hospitalization, Other)
  Sender: FDA-Public Use
  Company Number: None

PATIENT
  Age: 12 Year
  Sex: Male
  Weight: 33 kg

DRUGS (4)
  1. VINCRISTINE [Suspect]
     Active Substance: VINCRISTINE
     Indication: Hodgkin^s disease
     Dosage: 1.67 MG/DAY IV ON 02 AND 09/01/23, VINCRISTINA TEVA ITALY
     Route: 042
     Dates: start: 20230102, end: 20230109
  2. ETOPOSIDE [Suspect]
     Active Substance: ETOPOSIDE
     Indication: Hodgkin^s disease
     Dosage: 143 MILLIGRAM DAILY;
     Route: 065
     Dates: start: 20230102, end: 20230106
  3. PREDNISONE [Concomitant]
     Active Substance: PREDNISONE
     Indication: Hodgkin^s disease
     Dosage: 65 MILLIGRAM DAILY; 65 MG/DAY (SPLIT INTO 3 SUMMARIES OF 25 MG + 3 X 5 MG + 25 MG) FROM DAY 02 TO DA
     Dates: start: 20230102, end: 20230115
  4. OMEPRAZOLE [Concomitant]
     Active Substance: OMEPRAZOLE
     Indication: Product used for unknown indication
     Dosage: 20 MILLIGRAM DAILY;
     Dates: start: 20230102, end: 20230115

REACTIONS (3)
  - Febrile neutropenia [Recovered/Resolved]
  - Leukopenia [Recovering/Resolving]
  - Anaemia [Not Recovered/Not Resolved]

NARRATIVE: CASE EVENT DATE: 20230115
